FAERS Safety Report 20349482 (Version 1)
Quarter: 2022Q1

REPORT INFORMATION
  Report Type: Spontaneous
  Country: US (occurrence: US)
  Receive Date: 20220119
  Receipt Date: 20220119
  Transmission Date: 20220424
  Serious: No
  Sender: FDA-Public Use
  Company Number: US-AMGEN-USASP2022003486

PATIENT
  Sex: Male

DRUGS (2)
  1. ARANESP [Suspect]
     Active Substance: DARBEPOETIN ALFA
     Indication: Haemoglobin decreased
     Dosage: UNK, Q2WK
     Route: 065
     Dates: start: 202005
  2. ARANESP [Suspect]
     Active Substance: DARBEPOETIN ALFA
     Dosage: EVERY TWO TO THREE WEEKS
     Route: 065
     Dates: start: 202005

REACTIONS (3)
  - Drug effect less than expected [Unknown]
  - Injection site pain [Unknown]
  - Hypoacusis [Unknown]
